FAERS Safety Report 8795704 (Version 1)
Quarter: 2012Q4

REPORT INFORMATION
  Report Type: 
  Country: US (occurrence: US)
  Receive Date: 20120919
  Receipt Date: 20120919
  Transmission Date: 20130627
  Serious: No
  Sender: FDA-Public Use
  Company Number: US-ASTRAZENECA-2012SE15710

PATIENT
  Age: 66 Year
  Sex: Female
  Weight: 154 kg

DRUGS (7)
  1. NEXIUM [Suspect]
     Indication: ULCER
     Dosage: ONE IN THE MORNING AND ONE AT NIGHT
     Route: 048
  2. NEXIUM [Suspect]
     Indication: GASTRIC DISORDER
     Dosage: ONE IN THE MORNING AND ONE AT NIGHT
     Route: 048
  3. NEXIUM [Suspect]
     Indication: ULCER
     Route: 048
  4. NEXIUM [Suspect]
     Indication: GASTRIC DISORDER
     Route: 048
  5. PRILOSEC OTC [Suspect]
     Indication: ULCER
     Route: 048
  6. PRILOSEC OTC [Suspect]
     Indication: GASTRIC DISORDER
     Route: 048
  7. LIPITOR [Concomitant]

REACTIONS (8)
  - Ulcer [Unknown]
  - Abdominal distension [Unknown]
  - Diarrhoea [Unknown]
  - Vomiting [Unknown]
  - Malaise [Unknown]
  - Nausea [Unknown]
  - Intentional drug misuse [Unknown]
  - Drug ineffective [Unknown]
